FAERS Safety Report 6825313-5 (Version None)
Quarter: 2010Q3

REPORT INFORMATION
  Report Type: 
  Country: None (occurrence: None)
  Receive Date: 20100708
  Receipt Date: 20061213
  Transmission Date: 20110219
  Serious: No
  Sender: FDA-Public Use
  Company Number: US-PFIZER INC-2006154254

PATIENT
  Sex: Female
  Weight: 44.91 kg

DRUGS (10)
  1. CHANTIX [Suspect]
     Indication: SMOKING CESSATION THERAPY
     Dates: start: 20061201
  2. CENTRUM [Concomitant]
  3. ACETYLSALICYLIC ACID [Concomitant]
  4. PAXIL [Concomitant]
  5. ZIAC [Concomitant]
  6. HYDROCHLOROTHIAZIDE [Concomitant]
  7. FOSAMAX [Concomitant]
  8. VITAMIN D [Concomitant]
  9. POTASSIUM CHLORIDE [Concomitant]
  10. CALCIUM WITH VITAMIN D [Concomitant]

REACTIONS (2)
  - NAUSEA [None]
  - VOMITING [None]
